FAERS Safety Report 25406435 (Version 3)
Quarter: 2025Q3

REPORT INFORMATION
  Report Type: Spontaneous
  Country: CO (occurrence: CO)
  Receive Date: 20250606
  Receipt Date: 20250830
  Transmission Date: 20251021
  Serious: Yes (Other)
  Sender: TAKEDA
  Company Number: CO-TAKEDA-2025TUS052235

PATIENT
  Sex: Male
  Weight: 70 kg

DRUGS (8)
  1. ENTYVIO [Suspect]
     Active Substance: VEDOLIZUMAB
     Indication: Crohn^s disease
  2. MESALAMINE [Suspect]
     Active Substance: MESALAMINE
     Indication: Product used for unknown indication
  3. PREDNISOLONE [Suspect]
     Active Substance: PREDNISOLONE
     Indication: Product used for unknown indication
  4. MEMANTINE [Concomitant]
     Active Substance: MEMANTINE
  5. QUETIAPINE [Concomitant]
     Active Substance: QUETIAPINE
  6. LEVOTHYROXINE [Concomitant]
     Active Substance: LEVOTHYROXINE
  7. SERTRALINE [Concomitant]
     Active Substance: SERTRALINE HYDROCHLORIDE
  8. PROPAFENONE [Concomitant]
     Active Substance: PROPAFENONE

REACTIONS (9)
  - Crohn^s disease [Unknown]
  - Cyanosis central [Unknown]
  - Incorrect drug administration rate [Unknown]
  - Weight decreased [Unknown]
  - Dizziness [Unknown]
  - Chest pain [Unknown]
  - Dyspnoea [Unknown]
  - Bronchitis [Unknown]
  - Therapeutic product effect incomplete [Unknown]
